FAERS Safety Report 5475855-2 (Version None)
Quarter: 2007Q3

REPORT INFORMATION
  Report Type: 
  Country: None (occurrence: None)
  Receive Date: 20070927
  Receipt Date: 20070608
  Transmission Date: 20080115
  Serious: Yes (Other)
  Sender: FDA-Public Use
  Company Number: US-CVT-070122

PATIENT
  Age: 81 Year
  Sex: Female

DRUGS (1)
  1. RANEXA [Suspect]
     Indication: ANGINA PECTORIS
     Dosage: MG, BID, ORAL
     Route: 048

REACTIONS (2)
  - DIZZINESS [None]
  - SYNCOPE [None]
